FAERS Safety Report 17688340 (Version 1)
Quarter: 2020Q2

REPORT INFORMATION
  Report Type: Spontaneous
  Country: CN (occurrence: CN)
  Receive Date: 20200421
  Receipt Date: 20200421
  Transmission Date: 20200714
  Serious: Yes (Other)
  Sender: FDA-Public Use
  Company Number: CN-ROCHE-2585494

PATIENT
  Age: 67 Year
  Sex: Male

DRUGS (5)
  1. CYCLOPHOSPHAMIDE. [Concomitant]
     Active Substance: CYCLOPHOSPHAMIDE
     Indication: MANTLE CELL LYMPHOMA STAGE IV
     Dosage: TREATMENT DATES (21/NOV/2017, 14/DEC/2017, /FEB/2018, 26/FEB/2018, 21/MAR/2018 AND 13/APR/2018)
     Route: 065
     Dates: start: 20171101
  2. PREDNISOLONE. [Concomitant]
     Active Substance: PREDNISOLONE
     Indication: MANTLE CELL LYMPHOMA STAGE IV
     Dosage: CHOP REGIMEN (21/NOV/2017, 14/DEC/2017) RCHOP (/FEB/2018, 26/FEB/2018, 21/MAR/2018 AND 13/APR/2018)
     Route: 065
     Dates: start: 20171101
  3. EPIRUBICIN [Concomitant]
     Active Substance: EPIRUBICIN
     Indication: MANTLE CELL LYMPHOMA STAGE IV
     Dosage: CHOP REGIMEN (21/NOV/2017, 14/DEC/2017, /FEB/2018, 26/FEB/2018), RCHOP REGIMEN (21/MAR/2018 AND 13/A
     Route: 065
     Dates: start: 20171101
  4. MABTHERA [Suspect]
     Active Substance: RITUXIMAB
     Indication: MANTLE CELL LYMPHOMA STAGE IV
     Dosage: R-CHOP REGIMEN, DAY 0, TREATMENT DATES (26/FEB/2018, 22/MAR/2, AND 13/APR/2018)
     Route: 065
     Dates: start: 20180201
  5. VINDESINE [Concomitant]
     Active Substance: VINDESINE
     Indication: MANTLE CELL LYMPHOMA STAGE IV
     Dosage: CHOP REGIMEN (21/NOV/2017, 14/DEC/2017), RCHOP REGIMEN (/FEB/2018, 26/FEB/2018, 21/MAR/2018, 13/APR/
     Route: 065
     Dates: start: 20171101

REACTIONS (4)
  - Unresponsive to stimuli [Unknown]
  - Bone marrow failure [Unknown]
  - Off label use [Unknown]
  - Intentional product use issue [Unknown]
